FAERS Safety Report 13914240 (Version 1)
Quarter: 2017Q3

REPORT INFORMATION
  Report Type: Spontaneous
  Country: US (occurrence: US)
  Receive Date: 20170828
  Receipt Date: 20170828
  Transmission Date: 20171127
  Serious: No
  Sender: FDA-Public Use
  Company Number: US-ROCHE-1131783

PATIENT
  Sex: Male
  Weight: 23.6 kg

DRUGS (2)
  1. NUTROPIN [Suspect]
     Active Substance: SOMATROPIN
     Indication: GROWTH FAILURE
     Route: 058
     Dates: start: 19970917
  2. NUTROPIN [Suspect]
     Active Substance: SOMATROPIN
     Dosage: EVERY OTHER DAY
     Route: 058

REACTIONS (2)
  - Pyrexia [Unknown]
  - Mood swings [Unknown]
